FAERS Safety Report 15010218 (Version 1)
Quarter: 2018Q2

REPORT INFORMATION
  Report Type: Spontaneous
  Country: PT (occurrence: PT)
  Receive Date: 20180614
  Receipt Date: 20180614
  Transmission Date: 20180711
  Serious: Yes (Other)
  Sender: FDA-Public Use
  Company Number: PT-009507513-1806PRT005520

PATIENT
  Age: 67 Year
  Sex: Male

DRUGS (17)
  1. CHLORELLA VULGARIS [Interacting]
     Active Substance: CHLORELLA VULGARIS
     Dosage: 520 MG/DAY
  2. MILK THISTLE [Concomitant]
     Active Substance: DIETARY SUPPLEMENT\HERBALS\MILK THISTLE
     Dosage: 300 MG, 3XDAY (TOTAL 13.5 MG OF SILYMARIN/DAY)
     Route: 048
  3. ALFUZOSIN HYDROCHLORIDE. [Concomitant]
     Active Substance: ALFUZOSIN HYDROCHLORIDE
     Dosage: UNK
  4. FORMOTEROL FUMARATE [Concomitant]
     Active Substance: FORMOTEROL FUMARATE
     Dosage: UNK
  5. TIOTROPIUM BROMIDE [Concomitant]
     Active Substance: TIOTROPIUM BROMIDE
     Dosage: UNK
  6. VITAMIN E [Concomitant]
     Active Substance: .ALPHA.-TOCOPHEROL
     Dosage: 20 MG, UNK
     Route: 048
  7. PACLITAXEL. [Interacting]
     Active Substance: PACLITAXEL
     Indication: LUNG ADENOCARCINOMA
     Dosage: 165 MG/M2, BIM
  8. TURMERIC [Interacting]
     Active Substance: HERBALS\TURMERIC
     Dosage: 15 G/DAY
     Route: 048
  9. ATORVASTATIN [Concomitant]
     Active Substance: ATORVASTATIN
     Dosage: UNK
  10. BUDESONIDE. [Interacting]
     Active Substance: BUDESONIDE
     Dosage: UNK
  11. CARBOPLATIN. [Concomitant]
     Active Substance: CARBOPLATIN
     Indication: LUNG ADENOCARCINOMA
     Dosage: 275 MG/M2, BIM
  12. COLOSTRUM POLYPEPTIDES [Concomitant]
     Dosage: 650 MG/ DAY
     Route: 048
  13. SELENIUM (UNSPECIFIED) [Concomitant]
     Active Substance: SELENIUM
     Dosage: 50 MICROGRAM, UNK
     Route: 048
  14. ASCORBIC ACID. [Concomitant]
     Active Substance: ASCORBIC ACID
     Dosage: 60 MG, UNK
     Route: 048
  15. VITAMIN A [Concomitant]
     Active Substance: VITAMIN A
     Dosage: 1.5 MG, UNK
     Route: 048
  16. SITAGLIPTIN PHOSPHATE (+) METFORMIN HYDROCHLORIDE [Suspect]
     Active Substance: METFORMIN HYDROCHLORIDE\SITAGLIPTIN PHOSPHATE
     Dosage: UNK
     Route: 048
  17. ZINC SULFATE [Concomitant]
     Active Substance: ZINC SULFATE\ZINC SULFATE ANHYDROUS
     Dosage: 5.5 MG, UNK
     Route: 048

REACTIONS (2)
  - Drug interaction [Unknown]
  - Hepatotoxicity [Recovered/Resolved]
